FAERS Safety Report 9098798 (Version 1)
Quarter: 2013Q1

REPORT INFORMATION
  Report Type: Spontaneous
  Country: GB (occurrence: GB)
  Receive Date: 20130214
  Receipt Date: 20130214
  Transmission Date: 20140127
  Serious: Yes (Death)
  Sender: FDA-Public Use
  Company Number: PHHY2013GB014110

PATIENT
  Age: 54 Year
  Sex: Male

DRUGS (4)
  1. OXYCODONE HYDROCHLORIDE [Suspect]
     Indication: PROCEDURAL PAIN
     Dosage: 40 ML, BID
     Route: 048
     Dates: start: 201205
  2. DIAZEPAM [Suspect]
  3. OXYNORM [Suspect]
     Indication: PROCEDURAL PAIN
     Route: 048
     Dates: start: 201205
  4. ETHANOL [Suspect]

REACTIONS (2)
  - Toxicity to various agents [Fatal]
  - Overdose [Fatal]
